FAERS Safety Report 10076845 (Version 5)
Quarter: 2014Q3

REPORT INFORMATION
  Report Type: Spontaneous
  Country: US (occurrence: US)
  Receive Date: 20140414
  Receipt Date: 20140806
  Transmission Date: 20150326
  Serious: Yes (Other)
  Sender: FDA-Public Use
  Company Number: US-PFIZER INC-2014101212

PATIENT
  Age: 63 Year
  Sex: Male

DRUGS (1)
  1. XELJANZ [Suspect]
     Active Substance: TOFACITINIB CITRATE
     Indication: RHEUMATOID ARTHRITIS
     Dosage: 5 MG, 2X/DAY
     Route: 048
     Dates: start: 20140301

REACTIONS (6)
  - Limb injury [Unknown]
  - Fibula fracture [Recovering/Resolving]
  - Rheumatoid arthritis [Unknown]
  - Fall [Unknown]
  - Drug ineffective [Unknown]
  - Muscle rupture [Unknown]

NARRATIVE: CASE EVENT DATE: 2014
